FAERS Safety Report 25846399 (Version 1)
Quarter: 2025Q3

REPORT INFORMATION
  Report Type: Spontaneous
  Country: US (occurrence: None)
  Receive Date: 20250924
  Receipt Date: 20250924
  Transmission Date: 20251020
  Serious: Yes (Hospitalization)
  Sender: FDA-CTU
  Company Number: None

PATIENT
  Age: 79 Year
  Sex: Female

DRUGS (4)
  1. POMALYST [Suspect]
     Active Substance: POMALIDOMIDE
     Indication: Arteriovenous malformation
     Dosage: FREQUENCY : DAILY;?
     Route: 048
     Dates: start: 20250826
  2. THALOMID [Concomitant]
     Active Substance: THALIDOMIDE
  3. FUROSEMIDE [Concomitant]
     Active Substance: FUROSEMIDE
  4. tHALMOID [Concomitant]

REACTIONS (1)
  - Product complaint [None]
